FAERS Safety Report 9065402 (Version 1)
Quarter: 2013Q1

REPORT INFORMATION
  Report Type: Report from Study
  Country: US (occurrence: US)
  Receive Date: 20130131
  Receipt Date: 20130131
  Transmission Date: 20140127
  Serious: Yes (Other)
  Sender: FDA-Public Use
  Company Number: US-ABBOTT-12P-163-1011873-00

PATIENT
  Age: 64 None
  Sex: Female
  Weight: 57.66 kg

DRUGS (2)
  1. HUMIRA [Suspect]
     Indication: RHEUMATOID ARTHRITIS
     Dates: end: 2012
  2. HUMIRA [Suspect]
     Dates: start: 2012

REACTIONS (8)
  - Endodontic procedure [Unknown]
  - Gingival infection [Unknown]
  - Gingival infection [Unknown]
  - Nasopharyngitis [Unknown]
  - Weight decreased [Unknown]
  - Fatigue [Unknown]
  - Drug ineffective [Unknown]
  - Inflammatory marker increased [Unknown]
